FAERS Safety Report 19203894 (Version 1)
Quarter: 2021Q2

REPORT INFORMATION
  Report Type: Spontaneous
  Country: US (occurrence: US)
  Receive Date: 20210501
  Receipt Date: 20210501
  Transmission Date: 20210717
  Serious: No
  Sender: FDA-Public Use
  Company Number: US-LUPIN PHARMACEUTICALS INC.-2021-05814

PATIENT
  Age: 35 Year
  Sex: Female

DRUGS (4)
  1. BRIVARACETAM [Suspect]
     Active Substance: BRIVARACETAM
     Indication: EPILEPSY
     Dosage: 100 MILLIGRAM, BID
     Route: 065
  2. CLOBAZAM. [Suspect]
     Active Substance: CLOBAZAM
     Indication: EPILEPSY
     Dosage: 20 MILLIGRAM,EVERY BEDTIME
     Route: 065
  3. ESLICARBAZEPINE [Suspect]
     Active Substance: ESLICARBAZEPINE
     Indication: EPILEPSY
     Dosage: 2400 MILLIGRAM, QD
     Route: 065
  4. FOLATE [Suspect]
     Active Substance: FOLATE SODIUM
     Indication: PRODUCT USED FOR UNKNOWN INDICATION
     Dosage: UNK
     Route: 065

REACTIONS (2)
  - Exposure during pregnancy [Unknown]
  - Normal newborn [Unknown]
